FAERS Safety Report 8918160 (Version 1)
Quarter: 2012Q4

REPORT INFORMATION
  Report Type: 
  Country: US (occurrence: US)
  Receive Date: 20121120
  Receipt Date: 20121120
  Transmission Date: 20130627
  Serious: No
  Sender: FDA-Public Use
  Company Number: US-ASTRAZENECA-2012SE22638

PATIENT
  Age: 47 Year
  Sex: Female
  Weight: 113.4 kg

DRUGS (2)
  1. NEXIUM [Suspect]
     Indication: DYSPEPSIA
     Route: 048
     Dates: start: 201104, end: 20120331
  2. METOPROLOL [Concomitant]
     Indication: HYPERTENSION

REACTIONS (5)
  - Dysphagia [Unknown]
  - Dyspnoea [Unknown]
  - Dyspepsia [Unknown]
  - Vomiting [Unknown]
  - Intentional drug misuse [Unknown]
